FAERS Safety Report 19714098 (Version 1)
Quarter: 2021Q3

REPORT INFORMATION
  Report Type: Spontaneous
  Country: US (occurrence: US)
  Receive Date: 20210818
  Receipt Date: 20210818
  Transmission Date: 20211014
  Serious: No
  Sender: FDA-Public Use
  Company Number: US-JNJFOC-20210819633

PATIENT
  Age: 65 Year
  Sex: Female
  Weight: 65.83 kg

DRUGS (2)
  1. FLONASE [Concomitant]
     Active Substance: FLUTICASONE PROPIONATE
     Indication: MULTIPLE ALLERGIES
     Route: 065
  2. STELARA [Suspect]
     Active Substance: USTEKINUMAB
     Indication: CROHN^S DISEASE
     Route: 058
     Dates: start: 2020

REACTIONS (2)
  - Inappropriate schedule of product administration [Unknown]
  - Parapsoriasis [Not Recovered/Not Resolved]

NARRATIVE: CASE EVENT DATE: 2021
